FAERS Safety Report 20703516 (Version 1)
Quarter: 2022Q2

REPORT INFORMATION
  Report Type: Spontaneous
  Country: IE (occurrence: IE)
  Receive Date: 20220413
  Receipt Date: 20220413
  Transmission Date: 20220721
  Serious: Yes (Hospitalization, Other)
  Sender: FDA-Public Use
  Company Number: None

PATIENT
  Age: 77 Year
  Sex: Female

DRUGS (2)
  1. CARBOPLATIN [Suspect]
     Active Substance: CARBOPLATIN
     Indication: Endometrial cancer
     Dosage: THREE WEEKLY CHEMOTHERAPY. PACLITAXEL WAS ADMINISTERED FIRST
  2. PACLITAXEL [Suspect]
     Active Substance: PACLITAXEL
     Indication: Endometrial cancer
     Dosage: STRENGTH:  6 MG/ML, CYCLE 2 175 MG / M2 THREE WEEKLY- 306 MG PACLITAXEL
     Dates: start: 20220105

REACTIONS (6)
  - Anaphylactic reaction [Unknown]
  - Cardiac arrest [Unknown]
  - Agonal respiration [Unknown]
  - Coma scale abnormal [Unknown]
  - Unresponsive to stimuli [Unknown]
  - Off label use [Unknown]
